FAERS Safety Report 4618368-X (Version None)
Quarter: 2005Q1

REPORT INFORMATION
  Report Type: 
  Country: None (occurrence: None)
  Receive Date: 20050323
  Receipt Date: 20050315
  Transmission Date: 20050727
  Serious: Yes (Hospitalization, Other)
  Sender: FDA-Public Use
  Company Number: 2005-02-1651

PATIENT
  Age: 63 Year
  Sex: Female
  Weight: 41 kg

DRUGS (5)
  1. PEG-INTRON [Suspect]
     Indication: HEPATITIS C
     Dosage: 60 MCG QW SUBCUTANEOUS
     Route: 058
     Dates: start: 20050124, end: 20050214
  2. REBETOL [Suspect]
     Indication: HEPATITIS C
     Dosage: 600 MG ORAL
     Route: 048
     Dates: start: 20050124, end: 20050220
  3. NORVASC [Concomitant]
  4. GASMOTIN (MOSAPRIDE CITRATE) [Concomitant]
  5. DOGMATYL [Concomitant]

REACTIONS (6)
  - CHEST INJURY [None]
  - DIZZINESS [None]
  - FALL [None]
  - HEAD INJURY [None]
  - LOSS OF CONSCIOUSNESS [None]
  - SUBARACHNOID HAEMORRHAGE [None]
